FAERS Safety Report 20266981 (Version 3)
Quarter: 2022Q1

REPORT INFORMATION
  Report Type: Other
  Country: US (occurrence: US)
  Receive Date: 20211231
  Receipt Date: 20220209
  Transmission Date: 20220423
  Serious: Yes (Hospitalization, Other)
  Sender: FDA-Public Use
  Company Number: US-NEUROCRINE BIOSCIENCES INC.-2021NBI07473

PATIENT

DRUGS (3)
  1. INGREZZA [Suspect]
     Active Substance: VALBENAZINE
     Indication: Tardive dyskinesia
     Dosage: 60 MILLIGRAM, QD
     Route: 048
     Dates: start: 20211203
  2. INGREZZA [Suspect]
     Active Substance: VALBENAZINE
     Dosage: 40 MILLIGRAM, QD
     Route: 048
     Dates: start: 20210528, end: 20211203
  3. MEMANTINE [Concomitant]
     Active Substance: MEMANTINE
     Dosage: UNK

REACTIONS (4)
  - Fall [Recovered/Resolved]
  - Abdominal discomfort [Recovering/Resolving]
  - Loss of consciousness [Recovering/Resolving]
  - Head injury [Recovering/Resolving]
